FAERS Safety Report 5833033-9 (Version None)
Quarter: 2008Q3

REPORT INFORMATION
  Report Type: 
  Country: None (occurrence: None)
  Receive Date: 20080805
  Receipt Date: 20080725
  Transmission Date: 20090109
  Serious: Yes (Other)
  Sender: FDA-Public Use
  Company Number: US-SP-2007-04380

PATIENT
  Age: 71 Year
  Sex: Female

DRUGS (3)
  1. RABIES VACCINE [Suspect]
     Indication: ACCIDENTAL EXPOSURE
     Route: 065
     Dates: start: 20060908
  2. IMMUNOGLOBULIN HUMAN ANTIRABIES [Suspect]
     Indication: ACCIDENTAL EXPOSURE
     Route: 065
     Dates: start: 20060908
  3. SULFACETAMIDE SOLUTION [Concomitant]

REACTIONS (9)
  - BLISTER [None]
  - CONJUNCTIVAL HYPERAEMIA [None]
  - EYE SWELLING [None]
  - EYELID OEDEMA [None]
  - HERPES ZOSTER [None]
  - HERPES ZOSTER OPHTHALMIC [None]
  - INJURY CORNEAL [None]
  - RASH PRURITIC [None]
  - VISION BLURRED [None]
